FAERS Safety Report 5468059-0 (Version None)
Quarter: 2007Q3

REPORT INFORMATION
  Report Type: 
  Country: None (occurrence: None)
  Receive Date: 20070926
  Receipt Date: 20070918
  Transmission Date: 20080115
  Serious: Yes (Death)
  Sender: FDA-Public Use
  Company Number: US-AVENTIS-200718215GDDC

PATIENT
  Age: 65 Year
  Sex: Male
  Weight: 88 kg

DRUGS (14)
  1. TAXOTERE [Suspect]
     Indication: NON-SMALL CELL LUNG CANCER
     Dosage: DOSE: UNK
     Route: 042
     Dates: start: 20070809, end: 20070809
  2. PLACEBO [Suspect]
     Indication: NON-SMALL CELL LUNG CANCER
     Dosage: DOSE: DAILY FOR 14 DAYS, THEN 7 DAYS OFF DRUG
     Route: 048
     Dates: start: 20070809
  3. PARACETAMOL [Concomitant]
     Indication: PAIN
     Dosage: DOSE: UNK (325 NG, AS REQUIRED)
     Dates: start: 20070601
  4. ATENOLOL [Concomitant]
     Dates: start: 20070327
  5. MULTI-VITAMINS [Concomitant]
     Dosage: DOSE QUANTITY: 1
     Dates: start: 20070208
  6. DEXAMETHASONE 0.5MG TAB [Concomitant]
     Dates: start: 20070808
  7. MEDINITE                           /00448801/ [Concomitant]
     Dosage: DOSE: AS REQUIRED (NOS)
     Dates: start: 20070601
  8. GABAPENTIN [Concomitant]
     Indication: NEUROPATHY
     Dates: start: 20070530
  9. HYDROCODONE BITARTRATE [Concomitant]
     Indication: PAIN
     Dosage: DOSE: 5/500
     Dates: start: 20070412
  10. PROCHLORPERAZINE [Concomitant]
     Indication: NAUSEA
     Dates: start: 20070213
  11. PROCHLORPERAZINE [Concomitant]
     Indication: VOMITING
     Dates: start: 20070213
  12. PRAZOSIN HCL [Concomitant]
     Dates: start: 20070327
  13. SIMVASTATIN [Concomitant]
     Dates: start: 20070119
  14. WARFARIN SODIUM [Concomitant]
     Dates: start: 20070327

REACTIONS (1)
  - NEUTROPENIC COLITIS [None]
